FAERS Safety Report 5573414-4 (Version None)
Quarter: 2007Q4

REPORT INFORMATION
  Report Type: 
  Country: None (occurrence: None)
  Receive Date: 20071220
  Receipt Date: 20071220
  Transmission Date: 20080405
  Serious: Yes (Hospitalization)
  Sender: FDA-Public Use
  Company Number: None

PATIENT
  Age: 71 Year
  Sex: Female
  Weight: 66.2252 kg

DRUGS (2)
  1. ABILIFY [Suspect]
     Indication: BIPOLAR DISORDER
     Dosage: 5MG HS PO
     Route: 048
     Dates: start: 20071026, end: 20071126
  2. LITIHIUM UNKNOWN UNKNOW [Suspect]
     Indication: DEMENTIA
     Dosage: DAILY PO
     Route: 048
     Dates: start: 20051026, end: 20071126

REACTIONS (2)
  - DYSTONIA [None]
  - NEUROLEPTIC MALIGNANT SYNDROME [None]
